FAERS Safety Report 12331347 (Version 1)
Quarter: 2016Q2

REPORT INFORMATION
  Report Type: Spontaneous
  Country: None (occurrence: None)
  Receive Date: 20160503
  Receipt Date: 20160503
  Transmission Date: 20160815
  Serious: Yes (Other)
  Sender: FDA-Public Use
  Company Number: None

PATIENT
  Age: 41 Year
  Sex: Female
  Weight: 63.5 kg

DRUGS (1)
  1. SECRET CLINICAL STRENGTH INVISIBLE COMPLETELY CLEAN [Suspect]
     Active Substance: ALUMINUM ZIRCONIUM TETRACHLOROHYDREX GLY
     Indication: HYPERHIDROSIS
     Route: 062
     Dates: start: 20160417, end: 20160429

REACTIONS (3)
  - Application site burn [None]
  - Allergy to chemicals [None]
  - Product formulation issue [None]

NARRATIVE: CASE EVENT DATE: 20160429
